FAERS Safety Report 20718153 (Version 3)
Quarter: 2023Q2

REPORT INFORMATION
  Report Type: Spontaneous
  Country: US (occurrence: US)
  Receive Date: 20220418
  Receipt Date: 20230531
  Transmission Date: 20230721
  Serious: Yes (Other)
  Sender: FDA-Public Use
  Company Number: US-JNJFOC-20220431152

PATIENT
  Age: 6 Decade
  Sex: Female

DRUGS (21)
  1. ELMIRON [Suspect]
     Active Substance: PENTOSAN POLYSULFATE SODIUM
     Indication: Cystitis interstitial
     Route: 048
     Dates: start: 1996, end: 2019
  2. ELMIRON [Suspect]
     Active Substance: PENTOSAN POLYSULFATE SODIUM
     Route: 048
     Dates: end: 2020
  3. IPRATROPIUM [Concomitant]
     Active Substance: IPRATROPIUM
     Indication: Asthma
     Dates: start: 2016, end: 2017
  4. BUPROPION HYDROCHLORIDE [Concomitant]
     Active Substance: BUPROPION HYDROCHLORIDE
     Indication: Affective disorder
     Dates: start: 2012
  5. VENLAFAXINE [Concomitant]
     Active Substance: VENLAFAXINE HYDROCHLORIDE
     Indication: Affective disorder
     Dates: start: 2012
  6. ABILIFY [Concomitant]
     Active Substance: ARIPIPRAZOLE
     Indication: Affective disorder
     Dates: start: 2012
  7. ADVAIR HFA [Concomitant]
     Active Substance: FLUTICASONE PROPIONATE\SALMETEROL XINAFOATE
     Indication: Asthma
     Dates: start: 2014, end: 2019
  8. TAMOXIFEN [Concomitant]
     Active Substance: TAMOXIFEN
     Indication: Prophylaxis
     Dates: start: 2014, end: 2019
  9. PROAIR HFA [Concomitant]
     Active Substance: ALBUTEROL SULFATE
     Indication: Asthma
     Dates: start: 2015, end: 2018
  10. LOSARTAN [Concomitant]
     Active Substance: LOSARTAN
     Indication: Hypertension
     Dates: start: 2015
  11. OXYCODONE AND ACETAMINOPHEN [Concomitant]
     Active Substance: ACETAMINOPHEN\OXYCODONE HYDROCHLORIDE
     Indication: Pain
     Dates: start: 2015
  12. NITROFURANTOIN [Concomitant]
     Active Substance: NITROFURANTOIN
     Indication: Urinary tract infection
     Dates: start: 2015, end: 2019
  13. ONDANSETRON [Concomitant]
     Active Substance: ONDANSETRON
     Indication: Nausea
     Dates: start: 2015, end: 2018
  14. ALPRAZOLAM [Concomitant]
     Active Substance: ALPRAZOLAM
     Indication: Anxiety
     Dates: start: 2015, end: 2019
  15. ESZOPICLONE [Concomitant]
     Active Substance: ESZOPICLONE
     Indication: Insomnia
     Dates: start: 2015, end: 2017
  16. CLOBETASOL [Concomitant]
     Active Substance: CLOBETASOL
     Indication: Infection
     Dates: start: 2015, end: 2019
  17. VENTOLIN [Concomitant]
     Active Substance: ALBUTEROL SULFATE
     Indication: Asthma
     Dates: start: 2016
  18. ALBUTEROL [Concomitant]
     Active Substance: ALBUTEROL
     Indication: Asthma
     Dates: start: 2016
  19. DOXEPIN [Concomitant]
     Active Substance: DOXEPIN
     Indication: Affective disorder
     Dates: start: 2016, end: 2020
  20. SUMATRIPTAN [Concomitant]
     Active Substance: SUMATRIPTAN
     Indication: Migraine
     Dates: start: 2017, end: 2020
  21. WIXELA INHUB [Concomitant]
     Active Substance: FLUTICASONE PROPIONATE\SALMETEROL XINAFOATE
     Indication: Asthma
     Dates: start: 2019, end: 2020

REACTIONS (1)
  - Maculopathy [Recovering/Resolving]

NARRATIVE: CASE EVENT DATE: 20170101
